FAERS Safety Report 7471636-9 (Version None)
Quarter: 2011Q2

REPORT INFORMATION
  Report Type: 
  Country: None (occurrence: None)
  Receive Date: 20110502
  Receipt Date: 20110405
  Transmission Date: 20111010
  Serious: Yes (Disabling)
  Sender: FDA-Public Use
  Company Number: ALA_01389_2010

PATIENT
  Sex: Female

DRUGS (2)
  1. REGLAN [Suspect]
     Indication: GASTROINTESTINAL DISORDER
     Dosage: 10 MG BID ORAL, 10 MG ORAL
     Route: 048
     Dates: start: 20010508, end: 20090330
  2. REGLAN [Suspect]
     Indication: GASTROINTESTINAL DISORDER
     Dosage: 10 MG BID ORAL, 10 MG ORAL
     Route: 048
     Dates: start: 20010501, end: 20090601

REACTIONS (9)
  - DEFORMITY [None]
  - EMOTIONAL DISORDER [None]
  - MULTIPLE INJURIES [None]
  - MENTAL DISORDER [None]
  - ACTIVITIES OF DAILY LIVING IMPAIRED [None]
  - ECONOMIC PROBLEM [None]
  - PAIN [None]
  - INCORRECT DRUG ADMINISTRATION DURATION [None]
  - MYOCLONUS [None]
